FAERS Safety Report 5017626-7 (Version None)
Quarter: 2006Q2

REPORT INFORMATION
  Report Type: 
  Country: None (occurrence: None)
  Receive Date: 20060604
  Receipt Date: 20060526
  Transmission Date: 20061013
  Serious: Yes (Death, Other)
  Sender: FDA-Public Use
  Company Number: AT-ABBOTT-06P-009-0334298-00

PATIENT
  Age: 69 Year
  Sex: Female

DRUGS (5)
  1. HUMIRA [Suspect]
     Indication: RHEUMATOID ARTHRITIS
     Route: 058
     Dates: start: 20050531, end: 20051005
  2. PREDNISONE [Concomitant]
     Indication: RHEUMATOID ARTHRITIS
     Dates: end: 20051005
  3. APREDNISOLON [Concomitant]
     Indication: RHEUMATOID ARTHRITIS
     Dates: end: 20051005
  4. BELOC-ZOC COMP [Concomitant]
     Indication: HYPERTONIA
     Dates: end: 20051005
  5. SIMVASTATIN [Concomitant]
     Indication: HYPERCHOLESTEROLAEMIA
     Dates: end: 20051005

REACTIONS (3)
  - LUNG NEOPLASM MALIGNANT [None]
  - PERITONEAL CARCINOMA [None]
  - PULMONARY EMBOLISM [None]
